FAERS Safety Report 8077942-1 (Version None)
Quarter: 2012Q1

REPORT INFORMATION
  Report Type: 
  Country: None (occurrence: None)
  Receive Date: 20120127
  Receipt Date: 20110103
  Transmission Date: 20120608
  Serious: No
  Sender: FDA-Public Use
  Company Number: US-ABBOTT-11P-163-0695353-00

PATIENT
  Sex: Female
  Weight: 75.364 kg

DRUGS (1)
  1. HUMIRA [Suspect]
     Indication: PSORIASIS
     Dates: start: 20101124

REACTIONS (2)
  - PSORIASIS [None]
  - DRUG DOSE OMISSION [None]
